FAERS Safety Report 11313722 (Version 1)
Quarter: 2015Q3

REPORT INFORMATION
  Report Type: Spontaneous
  Country: US (occurrence: None)
  Receive Date: 20150724
  Receipt Date: 20150724
  Transmission Date: 20151125
  Serious: Yes (Hospitalization)
  Sender: FDA-Public Use
  Company Number: None

PATIENT
  Age: 69 Year
  Sex: Male
  Weight: 57.4 kg

DRUGS (2)
  1. ASPIRIN. [Suspect]
     Active Substance: ASPIRIN
     Indication: THROMBOSIS PROPHYLAXIS
     Route: 048
     Dates: start: 20150702, end: 20150715
  2. IBUPROFEN. [Suspect]
     Active Substance: IBUPROFEN
     Indication: PAIN
     Route: 048
     Dates: start: 20150714, end: 20150714

REACTIONS (8)
  - Helicobacter test positive [None]
  - Hypotension [None]
  - Chronic obstructive pulmonary disease [None]
  - Neoplasm malignant [None]
  - Gastritis [None]
  - Gastrointestinal haemorrhage [None]
  - Gastric ulcer [None]
  - Anaemia [None]

NARRATIVE: CASE EVENT DATE: 20150715
